FAERS Safety Report 13651972 (Version 1)
Quarter: 2017Q2

REPORT INFORMATION
  Report Type: Spontaneous
  Country: US (occurrence: US)
  Receive Date: 20170614
  Receipt Date: 20170614
  Transmission Date: 20170830
  Serious: Yes (Disabling, Other)
  Sender: FDA-Public Use
  Company Number: None

PATIENT
  Age: 74 Year
  Sex: Male
  Weight: 87.75 kg

DRUGS (1)
  1. AMIODARONE HYDROCHLORIDE. [Suspect]
     Active Substance: AMIODARONE HYDROCHLORIDE
     Indication: HEART RATE IRREGULAR
     Dosage: ?          OTHER FREQUENCY:EVERY OTHER DAY;?
     Route: 048
     Dates: start: 20121226, end: 20160115

REACTIONS (6)
  - Dyspnoea [None]
  - Oxygen saturation decreased [None]
  - Fatigue [None]
  - Asthenia [None]
  - Loss of personal independence in daily activities [None]
  - Muscular weakness [None]

NARRATIVE: CASE EVENT DATE: 20170515
